FAERS Safety Report 6414495-5 (Version None)
Quarter: 2009Q4

REPORT INFORMATION
  Report Type: 
  Country: None (occurrence: None)
  Receive Date: 20091026
  Receipt Date: 20091013
  Transmission Date: 20100525
  Serious: Yes (Hospitalization)
  Sender: FDA-Public Use
  Company Number: US-ELI_LILLY_AND_COMPANY-US200910003388

PATIENT
  Sex: Male

DRUGS (1)
  1. SYMBYAX [Suspect]
     Dosage: 1 D/F, UNK

REACTIONS (2)
  - DEPRESSION [None]
  - SUICIDE ATTEMPT [None]
